FAERS Safety Report 4263217-5 (Version None)
Quarter: 2004Q1

REPORT INFORMATION
  Report Type: 
  Country: None (occurrence: None)
  Receive Date: 20040105
  Receipt Date: 20031231
  Transmission Date: 20041129
  Serious: Yes (Hospitalization)
  Sender: FDA-Public Use
  Company Number: US-BRISTOL-MYERS SQUIBB COMPANY-12467007

PATIENT
  Sex: Male

DRUGS (6)
  1. METOPROLOL TARTRATE [Suspect]
     Indication: HYPERTENSION
     Route: 048
  2. PRINIVIL [Suspect]
     Indication: HYPERTENSION
     Route: 048
  3. CLOPIDOGREL BISULFATE [Suspect]
  4. FUROSEMIDE [Suspect]
     Route: 048
  5. LOVASTATIN [Suspect]
  6. FELODIPINE [Suspect]
     Route: 048

REACTIONS (2)
  - BLOOD PRESSURE DECREASED [None]
  - FALL [None]
